FAERS Safety Report 16358372 (Version 1)
Quarter: 2019Q2

REPORT INFORMATION
  Report Type: Report from Study
  Country: NL (occurrence: NL)
  Receive Date: 20190527
  Receipt Date: 20190527
  Transmission Date: 20190711
  Serious: Yes (Hospitalization)
  Sender: FDA-Public Use
  Company Number: NL-ASTRAZENECA-2019SE40371

PATIENT
  Age: 1 Year
  Sex: Female
  Weight: 7.6 kg

DRUGS (4)
  1. SYNAGIS [Suspect]
     Active Substance: PALIVIZUMAB
     Indication: ANTIVIRAL PROPHYLAXIS
     Dosage: 57 MG, MONTHLY ON 25-SEP-2018, 71 MG ON 23-OCT-2018, 83 MG ON 20-NOV-2018, 91 MG, ON 18-DEC-2018
     Route: 030
     Dates: start: 20180925, end: 20181218
  2. SYNAGIS [Suspect]
     Active Substance: PALIVIZUMAB
     Indication: ANTIVIRAL PROPHYLAXIS
     Dosage: 104 MG, MONTHLY ON 22-JAN-2019, 114 MG, ON 22-FEB-2019
     Route: 030
     Dates: start: 20190122
  3. VITAMIN D [Concomitant]
     Active Substance: VITAMIN D NOS
     Indication: PRODUCT USED FOR UNKNOWN INDICATION
  4. VITAMIN K [Concomitant]
     Active Substance: PHYTONADIONE
     Indication: PRODUCT USED FOR UNKNOWN INDICATION

REACTIONS (1)
  - Bronchitis [Recovered/Resolved]

NARRATIVE: CASE EVENT DATE: 2019
